FAERS Safety Report 26181164 (Version 1)
Quarter: 2025Q4

REPORT INFORMATION
  Report Type: Spontaneous
  Country: US (occurrence: US)
  Receive Date: 20251221
  Receipt Date: 20251221
  Transmission Date: 20260118
  Serious: Yes (Other)
  Sender: SANOFI AVENTIS
  Company Number: US-SA-2025SA377026

PATIENT
  Age: 68 Year
  Sex: Female
  Weight: 68.05 kg

DRUGS (29)
  1. DUPIXENT [Suspect]
     Active Substance: DUPILUMAB
     Indication: Asthma
     Dosage: 300 MG, QOW
     Route: 058
  2. ROPINIROLE HYDROCHLORIDE [Concomitant]
     Active Substance: ROPINIROLE HYDROCHLORIDE
  3. TRIAMCINOLONE ACETONIDE [Concomitant]
     Active Substance: TRIAMCINOLONE ACETONIDE
  4. SIMPONI [Concomitant]
     Active Substance: GOLIMUMAB
  5. ZOCOR [Concomitant]
     Active Substance: SIMVASTATIN
  6. CLONAZEPAM [Concomitant]
     Active Substance: CLONAZEPAM
  7. DOCUSATE SODIUM [Concomitant]
     Active Substance: DOCUSATE SODIUM
  8. TYLENOL [Concomitant]
     Active Substance: ACETAMINOPHEN
  9. VITAMIN C [Concomitant]
     Active Substance: ASCORBIC ACID
  10. Boost high protein [Concomitant]
  11. REFRESH TEARS [Concomitant]
     Active Substance: CARBOXYMETHYLCELLULOSE SODIUM
  12. FISH OIL [Concomitant]
     Active Substance: FISH OIL
  13. IRON [Concomitant]
     Active Substance: IRON
  14. VITAMINS [Concomitant]
     Active Substance: VITAMINS
  15. VYZULTA [Concomitant]
     Active Substance: LATANOPROSTENE BUNOD
  16. BEPREVE [Concomitant]
     Active Substance: BEPOTASTINE BESILATE
  17. TIMOLOL MALEATE [Concomitant]
     Active Substance: TIMOLOL MALEATE
  18. SIMBRINZA [Concomitant]
     Active Substance: BRIMONIDINE TARTRATE\BRINZOLAMIDE
  19. BENZONATATE [Concomitant]
     Active Substance: BENZONATATE
  20. MUCINEX [Concomitant]
     Active Substance: GUAIFENESIN
  21. SODIUM CHLORIDE [Concomitant]
     Active Substance: SODIUM CHLORIDE
  22. ALBUTEROL SULFATE [Concomitant]
     Active Substance: ALBUTEROL SULFATE
  23. SINGULAIR [Concomitant]
     Active Substance: MONTELUKAST SODIUM
  24. LIDOCAINE [Concomitant]
     Active Substance: LIDOCAINE
  25. NORVASC [Concomitant]
     Active Substance: AMLODIPINE BESYLATE
  26. PREDNISONE [Concomitant]
     Active Substance: PREDNISONE
  27. DULOXETINE HYDROCHLORIDE [Concomitant]
     Active Substance: DULOXETINE HYDROCHLORIDE
  28. METFORMIN [Concomitant]
     Active Substance: METFORMIN HYDROCHLORIDE
  29. ONDANSETRON ODT [ONDANSETRON] [Concomitant]

REACTIONS (1)
  - Pneumonia [Unknown]

NARRATIVE: CASE EVENT DATE: 20251213
